FAERS Safety Report 6379483-6 (Version None)
Quarter: 2009Q3

REPORT INFORMATION
  Report Type: 
  Country: None (occurrence: None)
  Receive Date: 20090928
  Receipt Date: 20090923
  Transmission Date: 20100115
  Serious: Yes (Other)
  Sender: FDA-Public Use
  Company Number: D0062989A

PATIENT
  Sex: Female

DRUGS (1)
  1. LAPATINIB [Suspect]
     Route: 065
     Dates: start: 20090922

REACTIONS (4)
  - DRUG HYPERSENSITIVITY [None]
  - DYSPNOEA [None]
  - FACE OEDEMA [None]
  - OFF LABEL USE [None]
